FAERS Safety Report 10177725 (Version 1)
Quarter: 2014Q2

REPORT INFORMATION
  Report Type: Spontaneous
  Country: US (occurrence: US)
  Receive Date: 20140516
  Receipt Date: 20140516
  Transmission Date: 20141212
  Serious: No
  Sender: FDA-Public Use
  Company Number: US-SANOFI-AVENTIS-2013SA042836

PATIENT
  Sex: 0

DRUGS (4)
  1. APIDRA SOLOSTAR [Suspect]
     Indication: DIABETES MELLITUS
     Route: 058
  2. APIDRA SOLOSTAR [Suspect]
     Indication: DIABETES MELLITUS
     Route: 058
  3. SOLOSTAR [Suspect]
     Indication: DEVICE THERAPY
  4. SOLOSTAR [Suspect]
     Indication: DEVICE THERAPY

REACTIONS (2)
  - Blood glucose increased [Unknown]
  - Drug ineffective [Unknown]
